FAERS Safety Report 21871487 (Version 1)
Quarter: 2023Q1

REPORT INFORMATION
  Report Type: Report from Study
  Country: CA (occurrence: CA)
  Receive Date: 20230117
  Receipt Date: 20230117
  Transmission Date: 20230418
  Serious: Yes (Other)
  Sender: FDA-Public Use
  Company Number: CA-MYLANLABS-2022M1081933

PATIENT
  Age: 61 Year
  Sex: Female
  Weight: 69.1 kg

DRUGS (2)
  1. OGIVRI [Suspect]
     Active Substance: TRASTUZUMAB-DKST
     Indication: Breast cancer metastatic
     Dosage: UNK, Q3W
     Route: 042
     Dates: start: 20220407
  2. OGIVRI [Suspect]
     Active Substance: TRASTUZUMAB-DKST
     Dosage: 450 MILLIGRAM, 3XW
     Route: 042
     Dates: start: 20220407

REACTIONS (3)
  - Cellulitis [Recovered/Resolved]
  - Hypotension [Unknown]
  - Weight decreased [Recovered/Resolved]

NARRATIVE: CASE EVENT DATE: 20221222
